FAERS Safety Report 8921943 (Version 1)
Quarter: 2012Q4

REPORT INFORMATION
  Report Type: Spontaneous
  Country: US (occurrence: None)
  Receive Date: 20121109
  Receipt Date: 20121109
  Transmission Date: 20130627
  Serious: Yes (Other)
  Sender: FDA-Public Use
  Company Number: 2012S1000645

PATIENT
  Age: 18 Year
  Sex: Male

DRUGS (9)
  1. CUBICIN [Suspect]
  2. CIPROFLOXACIN [Concomitant]
  3. AMOXICILLIN [Concomitant]
  4. MINOCYCLINE [Concomitant]
  5. ERTAPENEM [Concomitant]
  6. VANCOMYCIN [Concomitant]
  7. RIFAMPIN [Concomitant]
  8. MEROPENEM [Concomitant]
  9. TELAVANCIN [Concomitant]

REACTIONS (2)
  - Blood creatine phosphokinase increased [None]
  - Wound secretion [None]
